FAERS Safety Report 6864640-2 (Version None)
Quarter: 2010Q3

REPORT INFORMATION
  Report Type: 
  Country: None (occurrence: None)
  Receive Date: 20100721
  Receipt Date: 20080505
  Transmission Date: 20110219
  Serious: Yes (Other)
  Sender: FDA-Public Use
  Company Number: US-PFIZER INC-2008028675

PATIENT
  Sex: Male
  Weight: 90 kg

DRUGS (6)
  1. CHANTIX [Suspect]
     Indication: SMOKING CESSATION THERAPY
     Route: 048
  2. ANTIHYPERTENSIVES [Concomitant]
  3. VERAPAMIL [Concomitant]
  4. SEROQUEL [Concomitant]
     Indication: BIPOLAR DISORDER
  5. TRAZODONE HYDROCHLORIDE [Concomitant]
  6. DEPAKOTE [Concomitant]

REACTIONS (3)
  - HYPOTENSION [None]
  - INAPPROPRIATE SCHEDULE OF DRUG ADMINISTRATION [None]
  - NAUSEA [None]
